FAERS Safety Report 4356108-2 (Version None)
Quarter: 2004Q2

REPORT INFORMATION
  Report Type: 
  Country: None (occurrence: None)
  Receive Date: 20040511
  Receipt Date: 20040409
  Transmission Date: 20050107
  Serious: Yes (Hospitalization)
  Sender: FDA-Public Use
  Company Number: FR-GLAXOSMITHKLINE-B0329687B

PATIENT
  Age: 42 Year
  Sex: Male
  Weight: 63 kg

DRUGS (4)
  1. LEXIVA [Suspect]
     Indication: HIV INFECTION
     Dosage: 700MG TWICE PER DAY
     Route: 048
     Dates: start: 20011026
  2. RITONAVIR [Suspect]
     Indication: HIV INFECTION
     Dosage: 100MG TWICE PER DAY
     Route: 048
     Dates: start: 20011026
  3. ANTIRETROVIRAL MEDICATIONS [Concomitant]
     Indication: HIV INFECTION
  4. IODINE [Concomitant]
     Route: 042
     Dates: start: 20040212, end: 20040212

REACTIONS (3)
  - AMNESIA [None]
  - MALAISE [None]
  - TREMOR [None]
